FAERS Safety Report 15978221 (Version 1)
Quarter: 2019Q1

REPORT INFORMATION
  Report Type: Spontaneous
  Country: DE (occurrence: DE)
  Receive Date: 20190219
  Receipt Date: 20190219
  Transmission Date: 20190418
  Serious: Yes (Other)
  Sender: FDA-Public Use
  Company Number: DE-AUROBINDO-AUR-APL-2019-002434

PATIENT

DRUGS (3)
  1. METFORMIN FILM-COATED TABLET [Suspect]
     Active Substance: METFORMIN HYDROCHLORIDE
     Indication: DIABETES MELLITUS
     Dosage: UNK
     Route: 048
  2. VOCADO HCT [Concomitant]
     Active Substance: AMLODIPINE BESYLATE\HYDROCHLOROTHIAZIDE\OLMESARTAN MEDOXOMIL
     Indication: PRODUCT USED FOR UNKNOWN INDICATION
     Dosage: UNK
     Route: 065
  3. METFORMIN FILM-COATED TABLET [Suspect]
     Active Substance: METFORMIN HYDROCHLORIDE
     Dosage: ONE TIME EARLIER, TAKEN DOUBLE
     Route: 065

REACTIONS (5)
  - Extra dose administered [Unknown]
  - Blood glucose decreased [Unknown]
  - Loss of consciousness [Unknown]
  - Product administration error [Unknown]
  - Panic disorder [Recovered/Resolved]

NARRATIVE: CASE EVENT DATE: 20181223
